FAERS Safety Report 12934281 (Version 1)
Quarter: 2016Q4

REPORT INFORMATION
  Report Type: Report from Study
  Country: US (occurrence: US)
  Receive Date: 20161111
  Receipt Date: 20161111
  Transmission Date: 20170207
  Serious: Yes (Other)
  Sender: FDA-Public Use
  Company Number: US-MALLINCKRODT-T201605617

PATIENT
  Sex: Female

DRUGS (1)
  1. REPOSITORY CORTICOTROPIN INJECTION [Suspect]
     Active Substance: CORTICOTROPIN
     Indication: DERMATOMYOSITIS
     Dosage: 80U/1ML 2X/WK (WED. AND SUN.)
     Route: 058
     Dates: start: 20130901

REACTIONS (3)
  - Weight increased [Not Recovered/Not Resolved]
  - Blood glucose increased [Recovering/Resolving]
  - Glycosylated haemoglobin increased [Not Recovered/Not Resolved]
